FAERS Safety Report 9755298 (Version 1)
Quarter: 2013Q4

REPORT INFORMATION
  Report Type: Spontaneous
  Country: US (occurrence: US)
  Receive Date: 20131213
  Receipt Date: 20131213
  Transmission Date: 20140711
  Serious: No
  Sender: FDA-Public Use
  Company Number: US-GLAXOSMITHKLINE-A1015466A

PATIENT
  Age: 60 Year
  Sex: Female

DRUGS (1)
  1. NICODERM CQ CLEAR 14MG [Suspect]
     Indication: EX-TOBACCO USER
     Route: 062
     Dates: start: 201301

REACTIONS (5)
  - Hypersensitivity [Recovered/Resolved]
  - Application site urticaria [Recovered/Resolved]
  - Application site papules [Recovered/Resolved]
  - Application site erythema [Unknown]
  - Application site reaction [Unknown]
